FAERS Safety Report 11366457 (Version 3)
Quarter: 2017Q1

REPORT INFORMATION
  Report Type: Spontaneous
  Country: US (occurrence: US)
  Receive Date: 20150811
  Receipt Date: 20170127
  Transmission Date: 20170428
  Serious: Yes (Hospitalization, Other)
  Sender: FDA-Public Use
  Company Number: US-ELI_LILLY_AND_COMPANY-US201302006291

PATIENT
  Age: 43 Year
  Sex: Male
  Weight: 116 kg

DRUGS (6)
  1. AXIRON [Suspect]
     Active Substance: TESTOSTERONE
     Indication: BLOOD TESTOSTERONE DECREASED
     Dosage: UNK, UNKNOWN
     Route: 061
     Dates: start: 201212, end: 20141120
  2. PROSTATIN                          /07478801/ [Concomitant]
     Indication: BLOOD CHOLESTEROL
     Dosage: UNK
     Dates: start: 2008
  3. WARFARIN [Concomitant]
     Active Substance: WARFARIN
     Indication: ANTICOAGULANT THERAPY
     Dosage: UNK
     Dates: start: 2014
  4. ATENOLOL. [Concomitant]
     Active Substance: ATENOLOL
     Indication: BLOOD PRESSURE MANAGEMENT
     Dosage: UNK
     Dates: start: 2014
  5. PAROXETINE. [Concomitant]
     Active Substance: PAROXETINE
     Indication: ANXIETY
     Dosage: UNK
     Dates: start: 2007
  6. AMBIEN [Concomitant]
     Active Substance: ZOLPIDEM TARTRATE
     Indication: SLEEP DISORDER
     Dosage: UNK
     Dates: start: 2013

REACTIONS (5)
  - Deep vein thrombosis [Unknown]
  - Breast tenderness [Unknown]
  - Nipple disorder [Unknown]
  - Nipple pain [Unknown]
  - Pulmonary embolism [Not Recovered/Not Resolved]

NARRATIVE: CASE EVENT DATE: 20141120
